FAERS Safety Report 16437852 (Version 1)
Quarter: 2019Q2

REPORT INFORMATION
  Report Type: Spontaneous
  Country: US (occurrence: US)
  Receive Date: 20190616
  Receipt Date: 20190616
  Transmission Date: 20190711
  Serious: Yes (Hospitalization, Other)
  Sender: FDA-Public Use
  Company Number: US-PCCINC-2019-PEL-000188

PATIENT

DRUGS (1)
  1. GABLOFEN [Suspect]
     Active Substance: BACLOFEN
     Indication: MUSCLE SPASTICITY
     Dosage: 437.6 MICROGRAM PER DAY
     Route: 037

REACTIONS (6)
  - Flushing [Unknown]
  - Therapeutic product effect incomplete [Unknown]
  - Catheter site pain [Recovered/Resolved]
  - Withdrawal syndrome [Unknown]
  - Device breakage [Unknown]
  - Sensory disturbance [Recovered/Resolved]
